FAERS Safety Report 11928394 (Version 2)
Quarter: 2016Q1

REPORT INFORMATION
  Report Type: Spontaneous
  Country: US (occurrence: US)
  Receive Date: 20160119
  Receipt Date: 20160202
  Transmission Date: 20160526
  Serious: Yes (Hospitalization, Other)
  Sender: FDA-Public Use
  Company Number: US-TEVA-626998USA

PATIENT
  Age: 78 Year
  Sex: Female

DRUGS (2)
  1. ACETYLSALICYLIC ACID [Suspect]
     Active Substance: ASPIRIN
     Indication: ANTIPLATELET THERAPY
     Route: 065
  2. CLOPIDOGREL [Suspect]
     Active Substance: CLOPIDOGREL BISULFATE
     Indication: ANTIPLATELET THERAPY
     Route: 065

REACTIONS (5)
  - Platelet disorder [Recovering/Resolving]
  - Haemorrhage subcutaneous [Recovering/Resolving]
  - Petechiae [Recovering/Resolving]
  - Platelet count decreased [Recovering/Resolving]
  - Pulmonary alveolar haemorrhage [Recovering/Resolving]
